FAERS Safety Report 24311828 (Version 1)
Quarter: 2024Q3

REPORT INFORMATION
  Report Type: Spontaneous
  Country: US (occurrence: US)
  Receive Date: 20240912
  Receipt Date: 20240912
  Transmission Date: 20241016
  Serious: No
  Sender: SANOFI AVENTIS
  Company Number: US-SA-2024SA262464

PATIENT
  Age: 74 Year
  Sex: Male
  Weight: 83.9 kg

DRUGS (1)
  1. DUPIXENT [Suspect]
     Active Substance: DUPILUMAB
     Indication: Eosinophilic oesophagitis
     Dosage: 300 MG, QW
     Route: 058
     Dates: end: 202408

REACTIONS (4)
  - Aortic aneurysm [Recovering/Resolving]
  - Soft tissue haemorrhage [Recovering/Resolving]
  - Skin haemorrhage [Recovering/Resolving]
  - Contusion [Recovered/Resolved]
